FAERS Safety Report 22142152 (Version 1)
Quarter: 2023Q1

REPORT INFORMATION
  Report Type: Spontaneous
  Country: US (occurrence: US)
  Receive Date: 20230327
  Receipt Date: 20230327
  Transmission Date: 20230418
  Serious: Yes (Death)
  Sender: FDA-Public Use
  Company Number: US-PRECISION DOSE, INC.-2023PRD00002

PATIENT
  Age: 79 Year
  Sex: Female

DRUGS (3)
  1. CHLORTHALIDONE [Suspect]
     Active Substance: CHLORTHALIDONE
     Indication: Hypertension
  2. VANCOMYCIN [Concomitant]
     Active Substance: VANCOMYCIN
     Indication: Decubitus ulcer
  3. CEFEPIME [Concomitant]
     Active Substance: CEFEPIME HYDROCHLORIDE
     Indication: Decubitus ulcer

REACTIONS (1)
  - SJS-TEN overlap [Fatal]
